FAERS Safety Report 16234531 (Version 2)
Quarter: 2020Q2

REPORT INFORMATION
  Report Type: Report from Study
  Country: BG (occurrence: BG)
  Receive Date: 20190424
  Receipt Date: 20200430
  Transmission Date: 20200713
  Serious: Yes (Other)
  Sender: FDA-Public Use
  Company Number: BG-SAKK-2018SA176500AA

PATIENT
  Age: 64 Year
  Sex: Female
  Weight: 78 kg

DRUGS (9)
  1. FLUOROURACIL. [Suspect]
     Active Substance: FLUOROURACIL
     Dosage: UNK UNK, QCY
     Route: 042
     Dates: start: 20171208, end: 20171208
  2. CAPECITABINE;IRINOTECAN [Concomitant]
     Dosage: UNK
  3. FOLINIC ACID [Suspect]
     Active Substance: LEUCOVORIN
     Dosage: UNK UNK, QCY
     Route: 042
     Dates: start: 20171208, end: 20171208
  4. FOLINIC ACID [Suspect]
     Active Substance: LEUCOVORIN
     Indication: COLORECTAL CANCER METASTATIC
     Dosage: UNK UNK, QCY
     Route: 042
     Dates: start: 20180502, end: 20180502
  5. AFLIBERCEPT [Suspect]
     Active Substance: AFLIBERCEPT
     Dosage: UNK UNK, QCY (CUMMULATIVE DOSE WAS 32 MG/KG)
     Route: 042
     Dates: start: 20171208, end: 20171208
  6. FLUOROURACIL. [Suspect]
     Active Substance: FLUOROURACIL
     Indication: COLORECTAL CANCER METASTATIC
     Dosage: UNK UNK, QCY
     Route: 042
     Dates: start: 20180502, end: 20180502
  7. IRINOTECAN [Suspect]
     Active Substance: IRINOTECAN
     Dosage: UNK UNK, QCY
     Route: 042
     Dates: start: 20171208, end: 20171208
  8. AFLIBERCEPT [Suspect]
     Active Substance: AFLIBERCEPT
     Indication: COLORECTAL CANCER METASTATIC
     Dosage: UNK UNK, QCY (CUMMULATIVE DOSE WAS 32 MG/KG)
     Route: 042
     Dates: start: 20180502, end: 20180502
  9. IRINOTECAN [Suspect]
     Active Substance: IRINOTECAN
     Indication: COLORECTAL CANCER METASTATIC
     Dosage: UNK UNK, QCY
     Route: 042
     Dates: start: 20180502, end: 20180502

REACTIONS (2)
  - Hypertension [Not Recovered/Not Resolved]
  - Disease progression [Not Recovered/Not Resolved]

NARRATIVE: CASE EVENT DATE: 20180510
